FAERS Safety Report 22190755 (Version 1)
Quarter: 2023Q2

REPORT INFORMATION
  Report Type: Spontaneous
  Country: CA (occurrence: CA)
  Receive Date: 20230410
  Receipt Date: 20230410
  Transmission Date: 20230721
  Serious: Yes (Other)
  Sender: FDA-Public Use
  Company Number: CA-BAXTER-2023BAX017692

PATIENT

DRUGS (1)
  1. BUPIVACAINE [Suspect]
     Active Substance: BUPIVACAINE
     Indication: Product used for unknown indication
     Dosage: (BUPIVACAINE HYDROCHLORIDE IN DEXTROSE INJECTION USP SINGLE-DOSE) AT AN USPECIFIED DOSE AND FREQUENC
     Route: 065

REACTIONS (1)
  - Drug ineffective [Unknown]
